FAERS Safety Report 7532568-0 (Version None)
Quarter: 2011Q2

REPORT INFORMATION
  Report Type: 
  Country: None (occurrence: None)
  Receive Date: 20110526
  Receipt Date: 20110523
  Transmission Date: 20111010
  Serious: Yes (Other)
  Sender: FDA-Public Use
  Company Number: 2011028075

PATIENT
  Age: 55 Year
  Sex: Female
  Weight: 87.9978 kg

DRUGS (19)
  1. TRIAZOLAM [Concomitant]
  2. PERCOCET [Concomitant]
  3. HIZENTRA [Suspect]
  4. ZYRTEC [Concomitant]
  5. PRIMIDONE [Concomitant]
  6. HIZENTRA [Suspect]
  7. HIZENTRA [Suspect]
  8. SYNTHROID [Concomitant]
  9. ALDARA [Concomitant]
  10. PREVACID [Concomitant]
  11. ONDANSETRON HCL (ONDANSETRON) [Concomitant]
  12. L LYSINE (ACETYLLEUCINE LYSINE) [Concomitant]
  13. HIZENTRA [Suspect]
     Indication: IMMUNODEFICIENCY COMMON VARIABLE
     Dosage: SEE IMAGE
     Route: 058
     Dates: start: 20110301
  14. HIZENTRA [Suspect]
     Indication: IMMUNODEFICIENCY COMMON VARIABLE
     Dosage: SEE IMAGE
     Route: 058
     Dates: start: 20110504
  15. HIZENTRA [Suspect]
     Indication: IMMUNODEFICIENCY COMMON VARIABLE
     Dosage: SEE IMAGE
     Route: 058
     Dates: start: 20110504
  16. HIZENTRA [Suspect]
     Indication: IMMUNODEFICIENCY COMMON VARIABLE
     Dosage: SEE IMAGE
     Route: 058
     Dates: start: 20100826
  17. HIZENTRA [Suspect]
     Indication: IMMUNODEFICIENCY COMMON VARIABLE
     Dosage: SEE IMAGE
     Route: 058
     Dates: start: 20110301
  18. ZANTAC [Concomitant]
  19. NORFLEX [Concomitant]

REACTIONS (4)
  - EAR INFECTION [None]
  - UPPER RESPIRATORY TRACT INFECTION [None]
  - CANDIDIASIS [None]
  - EAR PAIN [None]
